FAERS Safety Report 10385291 (Version 1)
Quarter: 2014Q3

REPORT INFORMATION
  Report Type: Spontaneous
  Country: US (occurrence: None)
  Receive Date: 20140813
  Receipt Date: 20140813
  Transmission Date: 20150326
  Serious: Yes (Hospitalization)
  Sender: FDA-Public Use
  Company Number: None

PATIENT
  Age: 28 Year
  Sex: Female
  Weight: 58.06 kg

DRUGS (1)
  1. AMBIEN [Suspect]
     Active Substance: ZOLPIDEM TARTRATE
     Indication: INSOMNIA

REACTIONS (6)
  - Abnormal sleep-related event [None]
  - Suicidal ideation [None]
  - Sleep-related eating disorder [None]
  - Somnambulism [None]
  - Fall [None]
  - Alcohol use [None]

NARRATIVE: CASE EVENT DATE: 20140811
